FAERS Safety Report 11104250 (Version 1)
Quarter: 2015Q2

REPORT INFORMATION
  Report Type: Spontaneous
  Country: GB (occurrence: None)
  Receive Date: 20150507
  Receipt Date: 20150507
  Transmission Date: 20150821
  Serious: Yes (Other)
  Sender: FDA-Public Use
  Company Number: FK201502021

PATIENT
  Age: 70 Year
  Sex: Male
  Weight: 65 kg

DRUGS (4)
  1. CEFUROXIME. [Suspect]
     Active Substance: CEFUROXIME
     Indication: INTERVERTEBRAL DISCITIS
     Dosage: 2 GM, 1 IN 1 D, INTRAVENOUS (NOT OTHERWISE SPECIFIED)?
     Route: 042
     Dates: start: 20150324, end: 20150325
  2. ANTIBIOTICS [Concomitant]
     Active Substance: UNSPECIFIED INGREDIENT
  3. CEFTRIAXONE (CEFTRIAXONE) (CEFTRIAXONE) [Suspect]
     Active Substance: CEFTRIAXONE
     Indication: INTERVERTEBRAL DISCITIS
     Dosage: 1.5 GM, INTRAVENOUS (NOT OTHERWISE SPECIFIED)
     Route: 042
     Dates: start: 20150320, end: 20150323
  4. PSYCHIATRIC DRUGS NOS (PSYCHOANALEPTICS) [Concomitant]

REACTIONS (1)
  - Pancreatitis acute [None]

NARRATIVE: CASE EVENT DATE: 20150325
